FAERS Safety Report 16527182 (Version 1)
Quarter: 2019Q3

REPORT INFORMATION
  Report Type: Spontaneous
  Country: NL (occurrence: NL)
  Receive Date: 20190703
  Receipt Date: 20190703
  Transmission Date: 20191004
  Serious: Yes (Hospitalization, Other)
  Sender: FDA-Public Use
  Company Number: NL-MYLANLABS-2019M1062627

PATIENT
  Age: 64 Year
  Sex: Female

DRUGS (4)
  1. OXALIPLATIN. [Suspect]
     Active Substance: OXALIPLATIN
     Indication: PANCREATIC CARCINOMA
     Dosage: UNK, BIWEEKLY,BIWEEKLY CYCLE; AS PART OF FOLFIRINOX REGIMEN.
     Route: 065
  2. IRINOTECAN [Suspect]
     Active Substance: IRINOTECAN
     Indication: PANCREATIC CARCINOMA
     Dosage: UNK. BIWEEKLY,BIWEEKLY CYCLE; AS PART OF FOLFIRINOX REGIMEN.
     Route: 065
  3. FLUOROURACIL. [Suspect]
     Active Substance: FLUOROURACIL
     Indication: PANCREATIC CARCINOMA
     Dosage: UNK, BIWEEKLY,BIWEEKLY CYCLE; AS PART OF FOLFIRINOX REGIMEN.
     Route: 065
  4. LEUCOVORIN                         /00566701/ [Suspect]
     Active Substance: LEUCOVORIN
     Indication: PANCREATIC CARCINOMA
     Dosage: UNK, BIWEEKLY, (BIWEEKLY CYCLE; AS PART OF FOLFIRINOX REGIMEN)
     Route: 065

REACTIONS (6)
  - Urinary tract infection [Unknown]
  - Neutropenia [Unknown]
  - Gastrointestinal disorder [Unknown]
  - Thrombocytopenia [Unknown]
  - Pyrexia [Unknown]
  - Leukopenia [Unknown]
